FAERS Safety Report 5401076-5 (Version None)
Quarter: 2007Q3

REPORT INFORMATION
  Report Type: 
  Country: None (occurrence: None)
  Receive Date: 20070731
  Receipt Date: 20070720
  Transmission Date: 20080115
  Serious: Yes (Hospitalization, Other)
  Sender: FDA-Public Use
  Company Number: NZ-JNJFOC-20070704635

PATIENT
  Sex: Female

DRUGS (2)
  1. RISPERDAL [Suspect]
     Route: 048
  2. RISPERDAL [Suspect]
     Indication: DRUG USE FOR UNKNOWN INDICATION
     Route: 048

REACTIONS (7)
  - DIABETES MELLITUS [None]
  - DYSKINESIA [None]
  - OVERDOSE [None]
  - PARAESTHESIA [None]
  - TONGUE DISORDER [None]
  - TRISMUS [None]
  - WEIGHT INCREASED [None]
